FAERS Safety Report 8050681-9 (Version None)
Quarter: 2012Q1

REPORT INFORMATION
  Report Type: 
  Country: None (occurrence: None)
  Receive Date: 20120117
  Receipt Date: 20120117
  Transmission Date: 20120608
  Serious: Yes (Other)
  Sender: FDA-Public Use
  Company Number: None

PATIENT
  Age: 43 Year
  Sex: Female
  Weight: 86.182 kg

DRUGS (1)
  1. SIMVASTATIN [Suspect]
     Indication: BLOOD CHOLESTEROL INCREASED
     Dosage: 20MG
     Route: 048
     Dates: start: 20110919, end: 20110920

REACTIONS (8)
  - DIZZINESS [None]
  - CHILLS [None]
  - ASTHENIA [None]
  - VOMITING [None]
  - DIARRHOEA [None]
  - HYPERHIDROSIS [None]
  - FEELING COLD [None]
  - HYPOPNOEA [None]
